APPROVED DRUG PRODUCT: MOMETASONE FUROATE
Active Ingredient: MOMETASONE FUROATE
Strength: 0.1%
Dosage Form/Route: LOTION;TOPICAL
Application: A077678 | Product #001
Applicant: COSETTE PHARMACEUTICALS INC
Approved: Nov 21, 2007 | RLD: No | RS: No | Type: DISCN